FAERS Safety Report 19942648 (Version 1)
Quarter: 2021Q4

REPORT INFORMATION
  Report Type: Report from Study
  Country: LB (occurrence: LB)
  Receive Date: 20211012
  Receipt Date: 20211012
  Transmission Date: 20220303
  Serious: Yes (Other)
  Sender: FDA-Public Use
  Company Number: LB-NOVARTISPH-NVSC2021LB201609

PATIENT
  Sex: Male
  Weight: 78 kg

DRUGS (4)
  1. BEOVU [Suspect]
     Active Substance: BROLUCIZUMAB-DBLL
     Indication: Neovascular age-related macular degeneration
     Dosage: 6MG/ML (LEFT EYE)
     Route: 031
     Dates: start: 20210520
  2. BEOVU [Suspect]
     Active Substance: BROLUCIZUMAB-DBLL
     Dosage: UNK, (LEFT EYE)
     Route: 031
     Dates: start: 202106
  3. BEOVU [Suspect]
     Active Substance: BROLUCIZUMAB-DBLL
     Dosage: UNK, (LEFT EYE)
     Route: 031
     Dates: start: 202107
  4. BISOPROLOL FUMARATE [Concomitant]
     Active Substance: BISOPROLOL FUMARATE
     Indication: Product used for unknown indication
     Dosage: UNK
     Route: 065

REACTIONS (3)
  - Retinal oedema [Not Recovered/Not Resolved]
  - Visual field defect [Not Recovered/Not Resolved]
  - Photophobia [Not Recovered/Not Resolved]
